FAERS Safety Report 21993713 (Version 3)
Quarter: 2023Q4

REPORT INFORMATION
  Report Type: Spontaneous
  Country: JP (occurrence: JP)
  Receive Date: 20230215
  Receipt Date: 20231025
  Transmission Date: 20240110
  Serious: Yes (Hospitalization, Other)
  Sender: FDA-Public Use
  Company Number: JP-MSD-M2021-29254

PATIENT
  Age: 81 Year
  Sex: Female

DRUGS (5)
  1. BELSOMRA [Suspect]
     Active Substance: SUVOREXANT
     Dosage: 15 MILLIGRAM, HS
     Route: 048
     Dates: start: 20210111, end: 2021
  2. BELSOMRA [Suspect]
     Active Substance: SUVOREXANT
     Dosage: 7.5 MILLIGRAM
     Route: 048
     Dates: start: 2021
  3. BELSOMRA [Suspect]
     Active Substance: SUVOREXANT
     Dosage: 5 MILLIGRAM
     Route: 048
  4. BELSOMRA [Suspect]
     Active Substance: SUVOREXANT
     Dosage: 7.5 MILLIGRAM
     Route: 048
  5. ZOLPIDEM TARTRATE [Concomitant]
     Active Substance: ZOLPIDEM TARTRATE
     Dosage: UNK
     Route: 048

REACTIONS (10)
  - Hand fracture [Unknown]
  - Injury [Unknown]
  - Fall [Unknown]
  - Somnolence [Unknown]
  - Somnolence [Unknown]
  - Therapeutic response increased [Unknown]
  - Intentional product misuse [Unknown]
  - Intentional underdose [Unknown]
  - Intentional product misuse [Unknown]
  - Intentional underdose [Unknown]

NARRATIVE: CASE EVENT DATE: 20210101
